FAERS Safety Report 21786128 (Version 1)
Quarter: 2022Q4

REPORT INFORMATION
  Report Type: Spontaneous
  Country: US (occurrence: US)
  Receive Date: 20221228
  Receipt Date: 20221228
  Transmission Date: 20230113
  Serious: No
  Sender: FDA-Public Use
  Company Number: US-BIOVITRUM-2022US15576

PATIENT
  Age: 1 Year
  Sex: Female
  Weight: 9 kg

DRUGS (11)
  1. SYNAGIS [Suspect]
     Active Substance: PALIVIZUMAB
     Indication: Tracheostomy
  2. TYLENOL [Concomitant]
     Active Substance: ACETAMINOPHEN
     Dosage: TABLET
  3. VITAMIN D3 [Concomitant]
     Active Substance: CHOLECALCIFEROL
     Dosage: 10(400)/ML DROPS
  4. KEPPRA [Concomitant]
     Active Substance: LEVETIRACETAM
     Dosage: TABLET
  5. EPINEPHRINE [Concomitant]
     Active Substance: EPINEPHRINE
  6. SYNAGIS [Suspect]
     Active Substance: PALIVIZUMAB
     Indication: Congenital jaw malformation
  7. SYNAGIS [Suspect]
     Active Substance: PALIVIZUMAB
     Indication: Dependence on respirator
  8. SYNAGIS [Suspect]
     Active Substance: PALIVIZUMAB
     Indication: Device dependence
  9. SYNAGIS [Suspect]
     Active Substance: PALIVIZUMAB
     Indication: Hydrocephalus
  10. SYNAGIS [Suspect]
     Active Substance: PALIVIZUMAB
     Indication: Gastrostomy
  11. SYNAGIS [Suspect]
     Active Substance: PALIVIZUMAB
     Indication: Respiratory failure

REACTIONS (3)
  - COVID-19 [Unknown]
  - Weight decreased [Unknown]
  - Vomiting [Unknown]

NARRATIVE: CASE EVENT DATE: 20221101
